FAERS Safety Report 4359090-7 (Version None)
Quarter: 2004Q2

REPORT INFORMATION
  Report Type: 
  Country: None (occurrence: None)
  Receive Date: 20040517
  Receipt Date: 20040420
  Transmission Date: 20050107
  Serious: Yes (Death)
  Sender: FDA-Public Use
  Company Number: JP-MERCK-0404USA01931

PATIENT
  Age: 80 Year
  Sex: Female

DRUGS (10)
  1. [THERAPY UNSPECIFIED] [Concomitant]
     Indication: NUTRITIONAL SUPPORT
     Route: 065
     Dates: start: 20040219
  2. CEFEPIME HYDROCHLORIDE [Concomitant]
     Indication: HEPATITIS
     Route: 065
     Dates: start: 20040227, end: 20040306
  3. CEFOPERAZONE SODIUM AND SULBACTAM SODIUM [Concomitant]
     Indication: HEPATITIS
     Route: 065
     Dates: start: 20040307, end: 20040310
  4. PRIMAXIN [Suspect]
     Indication: HEPATITIS
     Route: 042
     Dates: start: 20040311, end: 20040315
  5. PRIMAXIN [Suspect]
     Route: 042
     Dates: start: 20040208, end: 20040226
  6. LANSOPRAZOLE [Concomitant]
     Indication: GASTRIC ULCER
     Route: 065
     Dates: start: 20040131, end: 20040319
  7. MINERALS (UNSPECIFIED) [Concomitant]
     Indication: NUTRITIONAL SUPPORT
     Route: 065
     Dates: start: 20040219
  8. PANTHENOL [Concomitant]
     Indication: CONSTIPATION
     Route: 065
     Dates: start: 20040309, end: 20040315
  9. PHENYTOIN [Concomitant]
     Indication: EPILEPSY
     Route: 065
     Dates: start: 20040131, end: 20040319
  10. SODIUM ALGINATE [Concomitant]
     Indication: GASTRIC ULCER
     Route: 065
     Dates: start: 20040131, end: 20040319

REACTIONS (12)
  - ALANINE AMINOTRANSFERASE INCREASED [None]
  - ASPARTATE AMINOTRANSFERASE INCREASED [None]
  - BLOOD PRESSURE SYSTOLIC INCREASED [None]
  - CEREBRAL ARTERY EMBOLISM [None]
  - DRUG HYPERSENSITIVITY [None]
  - GAMMA-GLUTAMYLTRANSFERASE INCREASED [None]
  - HAEMATOCRIT DECREASED [None]
  - HAEMOGLOBIN DECREASED [None]
  - HEART RATE INCREASED [None]
  - MULTI-ORGAN FAILURE [None]
  - PLATELET COUNT INCREASED [None]
  - TOXIC EPIDERMAL NECROLYSIS [None]
